FAERS Safety Report 4460450-4 (Version None)
Quarter: 2004Q3

REPORT INFORMATION
  Report Type: 
  Country: None (occurrence: None)
  Receive Date: 20040928
  Receipt Date: 20040726
  Transmission Date: 20050211
  Serious: No
  Sender: FDA-Public Use
  Company Number: US-GLAXOSMITHKLINE-A0519738A

PATIENT
  Age: 84 Year
  Sex: Female
  Weight: 80.9 kg

DRUGS (5)
  1. SEREVENT [Suspect]
     Indication: ASTHMA
     Dosage: 1PUFF TWICE PER DAY
     Route: 055
     Dates: start: 20040721, end: 20040722
  2. ALLEGRA [Concomitant]
  3. PRILOSEC [Concomitant]
  4. WATER PILL [Concomitant]
  5. TYLENOL [Concomitant]

REACTIONS (1)
  - TREMOR [None]
